FAERS Safety Report 6293100-5 (Version None)
Quarter: 2009Q3

REPORT INFORMATION
  Report Type: 
  Country: None (occurrence: None)
  Receive Date: 20090731
  Receipt Date: 20090722
  Transmission Date: 20100115
  Serious: Yes (Hospitalization, Other)
  Sender: FDA-Public Use
  Company Number: PHHY2009JP30578

PATIENT
  Age: 74 Year
  Sex: Male

DRUGS (1)
  1. GLEEVEC [Suspect]
     Dosage: 400 MG/DAY
     Route: 048

REACTIONS (4)
  - GASTROINTESTINAL STROMAL TUMOUR [None]
  - OESOPHAGEAL ANASTOMOSIS [None]
  - OESOPHAGOGASTRECTOMY [None]
  - SKIN LESION [None]
